FAERS Safety Report 11863421 (Version 2)
Quarter: 2016Q1

REPORT INFORMATION
  Report Type: Spontaneous
  Country: NL (occurrence: NL)
  Receive Date: 20151223
  Receipt Date: 20160127
  Transmission Date: 20160526
  Serious: Yes (Death)
  Sender: FDA-Public Use
  Company Number: NL-ACTELION-A-CH2015-128914

PATIENT
  Age: 50 Year
  Sex: Male
  Weight: 67 kg

DRUGS (1)
  1. OPSUMIT [Suspect]
     Active Substance: MACITENTAN
     Indication: PULMONARY ARTERIAL HYPERTENSION
     Dosage: 10 MG, OD
     Route: 048
     Dates: start: 20151206, end: 20151214

REACTIONS (7)
  - Haemoglobin decreased [Fatal]
  - Anuria [Fatal]
  - Renal failure [Fatal]
  - Coma [Fatal]
  - Blood bilirubin increased [Fatal]
  - Cardiovascular insufficiency [Fatal]
  - Bradycardia [Fatal]

NARRATIVE: CASE EVENT DATE: 20151211
